FAERS Safety Report 9819903 (Version 1)
Quarter: 2014Q1

REPORT INFORMATION
  Report Type: Spontaneous
  Country: CA (occurrence: CA)
  Receive Date: 20140116
  Receipt Date: 20140116
  Transmission Date: 20141002
  Serious: Yes (Congenital Anomaly, Other)
  Sender: FDA-Public Use
  Company Number: CA-ASTRAZENECA-2014SE01572

PATIENT
  Age: 18 Month
  Sex: Male

DRUGS (2)
  1. SEROQUEL [Suspect]
     Route: 064
  2. ATIVAN [Concomitant]

REACTIONS (2)
  - Cataract congenital [Not Recovered/Not Resolved]
  - Strabismus congenital [Not Recovered/Not Resolved]
